FAERS Safety Report 4478223-5 (Version None)
Quarter: 2004Q4

REPORT INFORMATION
  Report Type: 
  Country: None (occurrence: None)
  Receive Date: 20041018
  Receipt Date: 20041018
  Transmission Date: 20050328
  Serious: Yes (Hospitalization, Other)
  Sender: FDA-Public Use
  Company Number: None

PATIENT

DRUGS (7)
  1. BENZOCAINE [Suspect]
     Dosage: UNKNOWN ONCE
  2. VERAPAMIL [Concomitant]
  3. VANCOMYCIN [Concomitant]
  4. CLINDAMYCIN HCL [Concomitant]
  5. MORPHINE [Concomitant]
  6. OMEPRAZOLE [Concomitant]
  7. RISPERIDONE [Concomitant]

REACTIONS (3)
  - ACQUIRED METHAEMOGLOBINAEMIA [None]
  - CYANOSIS [None]
  - DYSPNOEA [None]
